FAERS Safety Report 10176571 (Version 1)
Quarter: 2014Q2

REPORT INFORMATION
  Report Type: Spontaneous
  Country: US (occurrence: None)
  Receive Date: 20140515
  Receipt Date: 20140515
  Transmission Date: 20141212
  Serious: Yes (Hospitalization)
  Sender: FDA-Public Use
  Company Number: None

PATIENT
  Age: 23 Year
  Sex: Male
  Weight: 74.84 kg

DRUGS (1)
  1. FLUORESCEIN 0.25%/0.4% ALTAFLUOR [Suspect]
     Indication: OPHTHALMOLOGICAL EXAMINATION
     Dosage: 1 DROP EACH EYE?GIVEN FOR EYE EXAM?INTO THE EYE
     Route: 031
     Dates: start: 20140512, end: 20140512

REACTIONS (8)
  - Dizziness [None]
  - Vision blurred [None]
  - Hypoacusis [None]
  - Paraesthesia [None]
  - Musculoskeletal stiffness [None]
  - Abdominal pain upper [None]
  - Chest pain [None]
  - Facial pain [None]
